FAERS Safety Report 14760791 (Version 2)
Quarter: 2018Q2

REPORT INFORMATION
  Report Type: Spontaneous
  Country: US (occurrence: US)
  Receive Date: 20180414
  Receipt Date: 20180602
  Transmission Date: 20180711
  Serious: No
  Sender: FDA-Public Use
  Company Number: US-JNJFOC-20180334256

PATIENT
  Sex: Female

DRUGS (1)
  1. TYLENOL REGULAR STRENGTH [Suspect]
     Active Substance: ACETAMINOPHEN
     Indication: ARTHRALGIA
     Dosage: STARTED ABOUT 3 MONTHS AGO.
     Route: 048

REACTIONS (4)
  - Hyperchlorhydria [Recovering/Resolving]
  - Eructation [Recovering/Resolving]
  - Oesophageal pain [Recovering/Resolving]
  - Incorrect dose administered [Unknown]
